FAERS Safety Report 6474614-1 (Version None)
Quarter: 2009Q4

REPORT INFORMATION
  Report Type: 
  Country: None (occurrence: None)
  Receive Date: 20091204
  Receipt Date: 20090123
  Transmission Date: 20100525
  Serious: No
  Sender: FDA-Public Use
  Company Number: US-ELI_LILLY_AND_COMPANY-US200901004059

PATIENT
  Sex: Female

DRUGS (5)
  1. CYMBALTA [Suspect]
     Indication: ABNORMAL BEHAVIOUR
     Dosage: 30 MG, 3/D
     Dates: start: 20080701
  2. CYMBALTA [Suspect]
     Dosage: 1 D/F, UNK
     Dates: start: 20090109, end: 20090101
  3. KLONOPIN [Concomitant]
     Indication: SLEEP DISORDER
  4. SYNTHROID [Concomitant]
     Indication: HYPOTHYROIDISM
  5. PERCOCET [Concomitant]
     Indication: PAIN

REACTIONS (1)
  - LIVER DISORDER [None]
